FAERS Safety Report 4755619-5 (Version None)
Quarter: 2005Q3

REPORT INFORMATION
  Report Type: 
  Country: None (occurrence: None)
  Receive Date: 20050830
  Receipt Date: 20050603
  Transmission Date: 20060218
  Serious: No
  Sender: FDA-Public Use
  Company Number: US-BRISTOL-MYERS SQUIBB COMPANY-12993051

PATIENT
  Sex: Female
  Weight: 75 kg

DRUGS (6)
  1. ABILIFY [Suspect]
     Indication: BIPOLAR DISORDER
     Dosage: 5 MG, 01-JUN-05, INCR (DOSE NOT SPECIFIED) ON 07-JUN-05, 15 MG, 21-JUN-05, D/C 24-JUN-05
     Dates: start: 20050601, end: 20050625
  2. LITHIUM [Concomitant]
  3. CLONIDINE [Concomitant]
  4. ZOCOR [Concomitant]
  5. FEMARA [Concomitant]
  6. PROMETHAZINE [Concomitant]

REACTIONS (14)
  - ANXIETY [None]
  - BLOOD GLUCOSE INCREASED [None]
  - DISORIENTATION [None]
  - DRUG INEFFECTIVE [None]
  - DYSARTHRIA [None]
  - DYSGRAPHIA [None]
  - DYSPHAGIA [None]
  - FATIGUE [None]
  - HICCUPS [None]
  - IMPAIRED DRIVING ABILITY [None]
  - NAUSEA [None]
  - PARKINSONIAN GAIT [None]
  - SEDATION [None]
  - TREMOR [None]
